FAERS Safety Report 8028504-3 (Version None)
Quarter: 2012Q1

REPORT INFORMATION
  Report Type: 
  Country: None (occurrence: None)
  Receive Date: 20120106
  Receipt Date: 20111229
  Transmission Date: 20120608
  Serious: Yes (Hospitalization)
  Sender: FDA-Public Use
  Company Number: GB-PERRIGO-11GB011440

PATIENT
  Age: 67 Year
  Sex: Male

DRUGS (2)
  1. DIGOXIN [Concomitant]
     Indication: PRODUCT USED FOR UNKNOWN INDICATION
     Dosage: 187.5 MICROGRAMS TWICE PER DAY
     Route: 065
  2. RANITIDINE HYDROCHLORIDE [Suspect]
     Indication: CHEST PAIN
     Dosage: 150 MG, BID
     Route: 065
     Dates: start: 20111208, end: 20111210

REACTIONS (5)
  - DYSPNOEA [None]
  - BRADYCARDIA [None]
  - FLATULENCE [None]
  - CONFUSIONAL STATE [None]
  - DIARRHOEA [None]
